FAERS Safety Report 21041751 (Version 2)
Quarter: 2022Q3

REPORT INFORMATION
  Report Type: Report from Study
  Country: US (occurrence: US)
  Receive Date: 20220705
  Receipt Date: 20220718
  Transmission Date: 20221026
  Serious: Yes (Life-Threatening, Hospitalization, Other)
  Sender: FDA-Public Use
  Company Number: US-BRISTOL-MYERS SQUIBB COMPANY-2022-065396

PATIENT
  Age: 75 Year
  Sex: Male

DRUGS (1)
  1. OPDIVO [Suspect]
     Active Substance: NIVOLUMAB
     Indication: Bladder cancer
     Dosage: DOSE : UNAVAILABLE;     FREQ : UNAVAILABLE
     Route: 065
     Dates: start: 20220406

REACTIONS (15)
  - Hyperthyroidism [Unknown]
  - Hypothyroidism [Unknown]
  - Renal failure [Unknown]
  - Visual impairment [Unknown]
  - Toxicity to various agents [Unknown]
  - Renal disorder [Unknown]
  - Myocarditis [Unknown]
  - Dysphagia [Unknown]
  - Colitis [Unknown]
  - Atrial fibrillation [Unknown]
  - Visual impairment [Unknown]
  - Abdominal pain [Unknown]
  - Haemoglobin decreased [Unknown]
  - Asthenia [Unknown]
  - Liver disorder [Unknown]

NARRATIVE: CASE EVENT DATE: 20220501
